FAERS Safety Report 11743430 (Version 4)
Quarter: 2015Q4

REPORT INFORMATION
  Report Type: Spontaneous
  Country: CA (occurrence: CA)
  Receive Date: 20151116
  Receipt Date: 20151215
  Transmission Date: 20160304
  Serious: Yes (Life-Threatening, Other)
  Sender: FDA-Public Use
  Company Number: CA-ABBVIE-15P-028-1500904-00

PATIENT
  Sex: Female
  Weight: 113.5 kg

DRUGS (2)
  1. SYNTHROID [Suspect]
     Active Substance: LEVOTHYROXINE SODIUM
     Dosage: PRESCRIBED SYNTHROID 225 AND DISPENSED SYNTHROID 25
     Route: 065
  2. SYNTHROID [Suspect]
     Active Substance: LEVOTHYROXINE SODIUM
     Indication: HYPOTHYROIDISM
     Route: 065

REACTIONS (11)
  - Aphasia [Recovering/Resolving]
  - Tearfulness [Recovering/Resolving]
  - Joint stiffness [Recovering/Resolving]
  - Drug dispensing error [Unknown]
  - Depression [Recovering/Resolving]
  - Coma [Unknown]
  - Amnesia [Unknown]
  - Apparent death [Unknown]
  - Dyspnoea [Recovering/Resolving]
  - Confusional state [Recovering/Resolving]
  - Circumstance or information capable of leading to medication error [Unknown]

NARRATIVE: CASE EVENT DATE: 2015
